FAERS Safety Report 9542522 (Version 1)
Quarter: 2013Q2

REPORT INFORMATION
  Report Type: Spontaneous
  Country: US (occurrence: None)
  Receive Date: 20130524
  Receipt Date: 20130524
  Transmission Date: 20140414
  Serious: Yes (Other)
  Sender: FDA-Public Use
  Company Number: PHEH2012US025334

PATIENT
  Age: 63 Year
  Sex: Female

DRUGS (5)
  1. GILENYA [Suspect]
     Indication: MULTIPLE SCLEROSIS
     Route: 048
     Dates: start: 20120214
  2. LYRICA (PREGABALIN) [Concomitant]
  3. GABAPENTIN (GABAPENTIN) [Concomitant]
  4. TRIAMTERENE AND HYDROCHLOROTHIAZID (HYDROCHLOROTHIAZIDE, TRIAMTERENE) [Concomitant]
  5. PROVIGIL (MODAFINIL) [Concomitant]

REACTIONS (2)
  - Skin mass [None]
  - Skin irritation [None]
